FAERS Safety Report 19711829 (Version 1)
Quarter: 2021Q3

REPORT INFORMATION
  Report Type: Report from Study
  Country: CO (occurrence: CO)
  Receive Date: 20210817
  Receipt Date: 20210817
  Transmission Date: 20211014
  Serious: Yes (Other)
  Sender: FDA-Public Use
  Company Number: NVSC2021CO184498

PATIENT
  Age: 77 Year
  Sex: Female
  Weight: 65 kg

DRUGS (3)
  1. ASPIRINETAS [Concomitant]
     Active Substance: ASPIRIN
     Indication: PRODUCT USED FOR UNKNOWN INDICATION
     Dosage: UNK, EVERY OTHER DAY, 6 YEARS AGO
     Route: 048
  2. LOSARTAN. [Suspect]
     Active Substance: LOSARTAN
     Indication: HYPERTENSION
     Dosage: 100 MG, QD, STARTED 6YEARS AGO
     Route: 048
  3. METOPROLOL. [Suspect]
     Active Substance: METOPROLOL
     Indication: HYPERTENSION
     Dosage: 100 MG, QD, STARTED 6 YEARS AGO
     Route: 048

REACTIONS (3)
  - Age-related macular degeneration [Unknown]
  - Arrhythmia [Unknown]
  - Lung disorder [Unknown]

NARRATIVE: CASE EVENT DATE: 202101
